FAERS Safety Report 8772658 (Version 2)
Quarter: 2012Q4

REPORT INFORMATION
  Report Type: 
  Country: BR (occurrence: BR)
  Receive Date: 20120905
  Receipt Date: 20120905
  Transmission Date: 20130627
  Serious: Yes (Hospitalization, Other)
  Sender: FDA-Public Use
  Company Number: PHHY2012BR047402

PATIENT
  Sex: Female
  Weight: 60 kg

DRUGS (1)
  1. SANDOSTATIN LAR [Suspect]
     Indication: ACROMEGALY
     Dosage: 20 mg, UNK

REACTIONS (8)
  - Cholelithiasis [Recovering/Resolving]
  - Osteoporosis [Unknown]
  - Odynophagia [Unknown]
  - Candidiasis [Unknown]
  - Insomnia [Unknown]
  - Musculoskeletal stiffness [Unknown]
  - Dysgeusia [Recovering/Resolving]
  - Tongue discolouration [Recovering/Resolving]
